FAERS Safety Report 7176646-7 (Version None)
Quarter: 2010Q4

REPORT INFORMATION
  Report Type: 
  Country: None (occurrence: None)
  Receive Date: 20101215
  Receipt Date: 20101215
  Transmission Date: 20110411
  Serious: Yes (Other)
  Sender: FDA-Public Use
  Company Number: None

PATIENT
  Sex: Female
  Weight: 13.6079 kg

DRUGS (1)
  1. HYLAND'S TEETHING TABS [Suspect]
     Indication: TEETHING
     Dosage: 2 TABLETS
     Dates: start: 20100601, end: 20101015

REACTIONS (2)
  - CONSTIPATION [None]
  - CONVULSION [None]
